FAERS Safety Report 14913546 (Version 1)
Quarter: 2018Q2

REPORT INFORMATION
  Report Type: Spontaneous
  Country: US (occurrence: US)
  Receive Date: 20180501
  Receipt Date: 20180501
  Transmission Date: 20180711
  Serious: Yes (Hospitalization)
  Sender: FDA-Public Use
  Company Number: None

PATIENT
  Age: 68 Year
  Sex: Male
  Weight: 48.63 kg

DRUGS (13)
  1. DOCUSATE [Concomitant]
     Active Substance: DOCUSATE
  2. GEMCITABINE [Suspect]
     Active Substance: GEMCITABINE\GEMCITABINE HYDROCHLORIDE
     Indication: PANCREATIC CARCINOMA
     Dosage: GEMCITABINE 28DAYCYCLE IV
     Route: 042
     Dates: start: 20171107, end: 20180227
  3. OXYCODONE [Concomitant]
     Active Substance: OXYCODONE
  4. DECADRON [Concomitant]
     Active Substance: DEXAMETHASONE
  5. ZANTAC [Concomitant]
     Active Substance: RANITIDINE HYDROCHLORIDE
  6. ZOFRAN [Concomitant]
     Active Substance: ONDANSETRON HYDROCHLORIDE
  7. MS CONTIN [Concomitant]
     Active Substance: MORPHINE SULFATE
  8. NAB-PACLITAXEL [Suspect]
     Active Substance: PACLITAXEL
     Dosage: NAB-PACLITAXEL 28DAYCYCLE IV
     Route: 042
     Dates: start: 20171107, end: 20180227
  9. PROTONIX [Concomitant]
     Active Substance: PANTOPRAZOLE SODIUM
  10. LACTULOSE. [Concomitant]
     Active Substance: LACTULOSE
  11. SENNA OTC [Concomitant]
  12. MIRALAX [Concomitant]
     Active Substance: POLYETHYLENE GLYCOL 3350
  13. APIXABAN [Concomitant]
     Active Substance: APIXABAN

REACTIONS (1)
  - Abdominal pain [None]

NARRATIVE: CASE EVENT DATE: 20180424
